FAERS Safety Report 9521201 (Version 1)
Quarter: 2013Q1

REPORT INFORMATION
  Report Type: Spontaneous
  Country: US (occurrence: None)
  Receive Date: 20130305
  Receipt Date: 20130305
  Transmission Date: 20140127
  Serious: Yes (Other)
  Sender: FDA-Public Use
  Company Number: 163-21880-12062433

PATIENT
  Age: 91 Year
  Sex: Female

DRUGS (2)
  1. REVLIMID [Suspect]
     Indication: MYELODYSPLASTIC SYNDROME
     Dosage: 10 MG, 28 IN 28 D, PO
     Route: 048
     Dates: start: 20120516, end: 2012
  2. BLOOD TRANSFUSION (BLOOD AND RELATED PRODUCTS) [Concomitant]

REACTIONS (14)
  - Haemorrhage urinary tract [None]
  - Local swelling [None]
  - Cough [None]
  - Fatigue [None]
  - Fatigue [None]
  - White blood cell count decreased [None]
  - Dyspnoea [None]
  - Cellulitis [None]
  - Decreased appetite [None]
  - Weight decreased [None]
  - Pain in extremity [None]
  - Gait disturbance [None]
  - Dry skin [None]
  - Lower respiratory tract infection [None]
